FAERS Safety Report 12331577 (Version 3)
Quarter: 2016Q4

REPORT INFORMATION
  Report Type: Spontaneous
  Country: US (occurrence: US)
  Receive Date: 20160504
  Receipt Date: 20161031
  Transmission Date: 20170207
  Serious: Yes (Hospitalization)
  Sender: FDA-Public Use
  Company Number: US-GLAXOSMITHKLINE-US2016060861

PATIENT
  Age: 47 Year
  Sex: Female

DRUGS (8)
  1. METOPROLOL. [Concomitant]
     Active Substance: METOPROLOL
  2. TUMERIC [Concomitant]
     Active Substance: TURMERIC
  3. COQ10 [Concomitant]
     Active Substance: UBIDECARENONE
  4. MEGARED [Concomitant]
  5. XANAX [Concomitant]
     Active Substance: ALPRAZOLAM
  6. ESTRADIOL. [Concomitant]
     Active Substance: ESTRADIOL
  7. SUMATRIPTAN (SUMATRIPTAN SUCCINATE) [Suspect]
     Active Substance: SUMATRIPTAN SUCCINATE
     Indication: MIGRAINE
     Dosage: 6 MG, UNK
     Route: 042
     Dates: start: 2012
  8. AMBIEN [Concomitant]
     Active Substance: ZOLPIDEM TARTRATE

REACTIONS (10)
  - Vomiting [Recovered/Resolved]
  - Product quality issue [Unknown]
  - Insomnia [Not Recovered/Not Resolved]
  - Anxiety [Not Recovered/Not Resolved]
  - Drug dose omission [Unknown]
  - Hysterectomy [Recovered/Resolved]
  - Visual impairment [Not Recovered/Not Resolved]
  - Abdominal mass [Recovered/Resolved]
  - Migraine [Unknown]
  - Photophobia [Not Recovered/Not Resolved]

NARRATIVE: CASE EVENT DATE: 201507
